FAERS Safety Report 24938716 (Version 2)
Quarter: 2025Q1

REPORT INFORMATION
  Report Type: Spontaneous
  Country: US (occurrence: US)
  Receive Date: 20250206
  Receipt Date: 20250218
  Transmission Date: 20250409
  Serious: Yes (Hospitalization)
  Sender: TEVA
  Company Number: US-TEVA-VS-3292914

PATIENT
  Age: 12 Year
  Sex: Female

DRUGS (12)
  1. ZOLPIDEM [Suspect]
     Active Substance: ZOLPIDEM TARTRATE
     Indication: Malignant catatonia
     Route: 065
  2. ZOLPIDEM [Suspect]
     Active Substance: ZOLPIDEM TARTRATE
     Indication: Malignant catatonia
     Route: 065
  3. ZOLPIDEM [Suspect]
     Active Substance: ZOLPIDEM TARTRATE
     Indication: Malignant catatonia
     Route: 065
  4. PREDNISONE [Concomitant]
     Active Substance: PREDNISONE
     Indication: Encephalitis autoimmune
     Route: 048
  5. LORAZEPAM [Suspect]
     Active Substance: LORAZEPAM
     Indication: Malignant catatonia
     Route: 042
  6. RITUXIMAB [Concomitant]
     Active Substance: RITUXIMAB
     Indication: Encephalitis autoimmune
     Route: 065
  7. METHYLPREDNISOLONE [Concomitant]
     Active Substance: METHYLPREDNISOLONE
     Indication: Encephalitis autoimmune
     Route: 042
  8. METHYLPREDNISOLONE [Concomitant]
     Active Substance: METHYLPREDNISOLONE
     Indication: Encephalitis autoimmune
     Route: 042
  9. IMMUNE GLOBULIN NOS [Concomitant]
     Active Substance: IMMUNE GLOBULIN NOS
     Indication: Encephalitis autoimmune
     Dosage: 0.4 GRAMS PER KILOGRAM
     Route: 042
  10. RISPERIDONE [Suspect]
     Active Substance: RISPERIDONE
     Indication: Psychotic disorder
     Route: 065
  11. OLANZAPINE [Suspect]
     Active Substance: OLANZAPINE
     Indication: Psychotic disorder
     Route: 065
  12. OLANZAPINE [Suspect]
     Active Substance: OLANZAPINE
     Indication: Psychotic disorder
     Route: 065

REACTIONS (12)
  - Aggression [Recovering/Resolving]
  - Muscle rigidity [Recovering/Resolving]
  - Urinary incontinence [Recovering/Resolving]
  - Freezing phenomenon [Recovering/Resolving]
  - Tremor [Recovering/Resolving]
  - Decreased appetite [Recovering/Resolving]
  - Drug ineffective [Unknown]
  - Mutism [Recovering/Resolving]
  - Off label use [Unknown]
  - Paradoxical drug reaction [Unknown]
  - Drug intolerance [Unknown]
  - Posturing [Recovering/Resolving]
